FAERS Safety Report 10913781 (Version 4)
Quarter: 2015Q4

REPORT INFORMATION
  Report Type: Spontaneous
  Country: US (occurrence: US)
  Receive Date: 20150313
  Receipt Date: 20151001
  Transmission Date: 20160304
  Serious: Yes (Other)
  Sender: FDA-Public Use
  Company Number: US-JNJFOC-20140103114

PATIENT
  Age: 72 Year
  Sex: Female

DRUGS (3)
  1. PARAFON FORTE [Suspect]
     Active Substance: CHLORZOXAZONE
     Indication: PAIN
     Dosage: 50 MG/ 500 MG
     Route: 048
     Dates: start: 1974
  2. PARAFON FORTE [Suspect]
     Active Substance: CHLORZOXAZONE
     Indication: PAIN
     Dosage: AS NEEDED
     Route: 048
  3. LOTENSIN [Concomitant]
     Active Substance: BENAZEPRIL HYDROCHLORIDE
     Indication: BLOOD PRESSURE MEASUREMENT
     Dosage: ONE IN AM AND ONE IN PM
     Route: 048
     Dates: start: 1992

REACTIONS (21)
  - Spinal column injury [Not Recovered/Not Resolved]
  - Thrombosis [Not Recovered/Not Resolved]
  - Haemorrhage [Recovered/Resolved]
  - Deep vein thrombosis [Not Recovered/Not Resolved]
  - Drug dose omission [Unknown]
  - Pain [Unknown]
  - Hypertension [Unknown]
  - Sciatica [Not Recovered/Not Resolved]
  - Hip arthroplasty [Not Recovered/Not Resolved]
  - Cholelithiasis [Recovered/Resolved]
  - Adverse event [Unknown]
  - Osteoporosis [Not Recovered/Not Resolved]
  - Fall [Recovered/Resolved]
  - Peripheral swelling [Unknown]
  - Road traffic accident [Unknown]
  - Arthropod bite [Recovered/Resolved]
  - Hypoaesthesia [Unknown]
  - Endometriosis [Recovered/Resolved]
  - Body height decreased [Not Recovered/Not Resolved]
  - Osteoarthritis [Not Recovered/Not Resolved]
  - Thrombosis [Unknown]

NARRATIVE: CASE EVENT DATE: 1986
